FAERS Safety Report 7842611-7 (Version None)
Quarter: 2011Q4

REPORT INFORMATION
  Report Type: 
  Country: None (occurrence: None)
  Receive Date: 20111025
  Receipt Date: 20111020
  Transmission Date: 20120403
  Serious: Yes (Hospitalization, Other)
  Sender: FDA-Public Use
  Company Number: US-PFIZER INC-2010110090

PATIENT
  Sex: Female

DRUGS (4)
  1. CHANTIX [Suspect]
     Indication: SMOKING CESSATION THERAPY
     Dosage: STARTER PACK AND TWO CONTINUOUS MONTH PACK, UNK
     Dates: start: 20070227, end: 20070901
  2. LEXAPRO [Concomitant]
     Indication: DEPRESSION
     Dosage: UNK
     Dates: start: 20060101, end: 20080101
  3. LEXAPRO [Concomitant]
     Indication: ANXIETY
  4. PREMPRO [Concomitant]
     Indication: HORMONE THERAPY
     Dosage: UNK
     Dates: start: 20050101, end: 20080101

REACTIONS (5)
  - SUICIDE ATTEMPT [None]
  - MENTAL STATUS CHANGES [None]
  - DEPRESSION [None]
  - INTENTIONAL OVERDOSE [None]
  - BIPOLAR DISORDER [None]
